FAERS Safety Report 10006071 (Version 10)
Quarter: 2014Q2

REPORT INFORMATION
  Report Type: Spontaneous
  Country: US (occurrence: US)
  Receive Date: 20140313
  Receipt Date: 20140422
  Transmission Date: 20141212
  Serious: Yes (Death, Hospitalization)
  Sender: FDA-Public Use
  Company Number: US-JNJFOC-20140306458

PATIENT
  Age: 81 Year
  Sex: Male
  Weight: 81.3 kg

DRUGS (13)
  1. XARELTO [Suspect]
     Indication: CEREBROVASCULAR ACCIDENT PROPHYLAXIS
     Route: 048
  2. XARELTO [Suspect]
     Indication: ATRIAL FIBRILLATION
     Route: 048
  3. ASPIRIN [Suspect]
     Indication: PRODUCT USED FOR UNKNOWN INDICATION
     Dosage: 2 PUFFS PRN
     Route: 048
  4. PLAVIX [Suspect]
     Indication: PRODUCT USED FOR UNKNOWN INDICATION
     Dosage: 2 PUFFS PRN
     Route: 048
  5. SYNTHROID [Concomitant]
     Route: 048
  6. VALIUM [Concomitant]
     Indication: MUSCLE SPASMS
     Dosage: AS NECESSARY
     Route: 048
  7. PROVENTIL [Concomitant]
     Dosage: 2 PUFFS PRN
     Route: 055
  8. LISINOPRIL [Concomitant]
     Dosage: 2 PUFFS PRN
     Route: 048
  9. HYDRALAZINE [Concomitant]
     Dosage: 2 PUFFS PRN
     Route: 048
  10. FLUOXETINE [Concomitant]
     Dosage: 2 PUFFS PRN
     Route: 048
  11. BACLOFEN [Concomitant]
     Dosage: 2 PUFFS PRN
     Route: 048
  12. AMLODIPINE [Concomitant]
     Dosage: 2 PUFFS PRN
     Route: 048
  13. AMBIEN [Concomitant]
     Indication: SLEEP DISORDER
     Dosage: 2 PUFFS PRN
     Route: 048

REACTIONS (6)
  - Cardiac arrest [Fatal]
  - Blood urine present [Unknown]
  - Unresponsive to stimuli [Unknown]
  - Blood pressure decreased [Unknown]
  - Haemoglobin decreased [Unknown]
  - Abdominal pain [Unknown]
